FAERS Safety Report 25039605 (Version 2)
Quarter: 2025Q1

REPORT INFORMATION
  Report Type: Spontaneous
  Country: US (occurrence: US)
  Receive Date: 20250305
  Receipt Date: 20250317
  Transmission Date: 20250409
  Serious: No
  Sender: LUPIN
  Company Number: US-LUPIN PHARMACEUTICALS INC.-2025-01956

PATIENT
  Age: 80 Year
  Weight: 56.689 kg

DRUGS (2)
  1. CEFADROXIL [Suspect]
     Active Substance: CEFADROXIL
     Indication: Prophylaxis
     Dosage: 1 DOSAGE FORM, BID
  2. MELATONIN [Concomitant]
     Active Substance: MELATONIN
     Indication: Insomnia
     Route: 065

REACTIONS (2)
  - Diarrhoea [Not Recovered/Not Resolved]
  - Gastrointestinal pain [Not Recovered/Not Resolved]
